FAERS Safety Report 17527306 (Version 1)
Quarter: 2020Q1

REPORT INFORMATION
  Report Type: Spontaneous
  Country: NO (occurrence: NO)
  Receive Date: 20200311
  Receipt Date: 20200311
  Transmission Date: 20200409
  Serious: Yes (Other)
  Sender: FDA-Public Use
  Company Number: NO-GLAXOSMITHKLINE-NO2019EME155233

PATIENT
  Age: 66 Year
  Sex: Female

DRUGS (5)
  1. TRELEGY ELLIPTA [Suspect]
     Active Substance: FLUTICASONE FUROATE\UMECLIDINIUM BROMIDE\VILANTEROL TRIFENATATE
     Indication: CHRONIC OBSTRUCTIVE PULMONARY DISEASE
     Dosage: UNK
     Dates: start: 20190821, end: 20200822
  2. METOPROLOL. [Concomitant]
     Active Substance: METOPROLOL
     Indication: PRODUCT USED FOR UNKNOWN INDICATION
     Dosage: 100 MG, QD
  3. VALSARTAN. [Concomitant]
     Active Substance: VALSARTAN
     Indication: PRODUCT USED FOR UNKNOWN INDICATION
     Dosage: UNK (320 MG AND 12.5 MG ONCE A DAY)
  4. VENTOLIN [Concomitant]
     Active Substance: ALBUTEROL SULFATE
     Indication: PRODUCT USED FOR UNKNOWN INDICATION
     Dosage: 0.2 MG
  5. ATORVASTATIN [Concomitant]
     Active Substance: ATORVASTATIN
     Indication: PRODUCT USED FOR UNKNOWN INDICATION
     Dosage: 20 MG, QD

REACTIONS (21)
  - Encephalitis [Unknown]
  - Chest discomfort [Unknown]
  - Depression [Unknown]
  - Eyelid ptosis [Unknown]
  - Acute motor axonal neuropathy [Unknown]
  - Swelling face [Recovered/Resolved]
  - Sinus pain [Unknown]
  - Hypercholesterolaemia [Unknown]
  - Peripheral sensory neuropathy [Unknown]
  - Eye swelling [Recovered/Resolved]
  - Chest pain [Unknown]
  - Vomiting [Recovered/Resolved]
  - Auditory disorder [Unknown]
  - Myalgia [Unknown]
  - Anxiety [Unknown]
  - Visual impairment [Unknown]
  - Paralysis [Unknown]
  - Vision blurred [Unknown]
  - Spirometry abnormal [Recovered/Resolved]
  - Nystagmus [Unknown]
  - Muscle rigidity [Unknown]
